FAERS Safety Report 23953240 (Version 1)
Quarter: 2024Q2

REPORT INFORMATION
  Report Type: Spontaneous
  Country: PT (occurrence: PT)
  Receive Date: 20240608
  Receipt Date: 20240608
  Transmission Date: 20240716
  Serious: Yes (Other)
  Sender: FDA-Public Use
  Company Number: PT-AUROBINDO-AUR-APL-2024-026757

PATIENT
  Age: 40 Year
  Sex: Male

DRUGS (2)
  1. HYDROCORTISONE [Suspect]
     Active Substance: HYDROCORTISONE
     Indication: Addison^s disease
     Dosage: 17.5 MILLIGRAM, TWO TIMES A DAY
     Route: 065
  2. FLUDROCORTISONE [Suspect]
     Active Substance: FLUDROCORTISONE
     Indication: Addison^s disease
     Dosage: 0.75 MILLIGRAM, TWO TIMES A DAY
     Route: 065

REACTIONS (3)
  - Rebound effect [Unknown]
  - Treatment noncompliance [Unknown]
  - Intentional product misuse [Unknown]
